FAERS Safety Report 7014800-5 (Version None)
Quarter: 2010Q3

REPORT INFORMATION
  Report Type: 
  Country: None (occurrence: None)
  Receive Date: 20100927
  Receipt Date: 20100504
  Transmission Date: 20110219
  Serious: No
  Sender: FDA-Public Use
  Company Number: US-ASTRAZENECA-2009SE10704

PATIENT
  Age: 76 Year
  Sex: Female
  Weight: 70.8 kg

DRUGS (5)
  1. ARIMIDEX [Suspect]
     Indication: BREAST CANCER
     Route: 048
     Dates: start: 20090901
  2. LOTREL [Concomitant]
  3. CALCIUM [Concomitant]
  4. VIT D [Concomitant]
  5. ZOCOR [Concomitant]

REACTIONS (18)
  - ARTHRALGIA [None]
  - AXILLARY MASS [None]
  - BACK PAIN [None]
  - BONE PAIN [None]
  - BREAST DISCOLOURATION [None]
  - CHEST PAIN [None]
  - DERMATITIS [None]
  - DIZZINESS [None]
  - HOT FLUSH [None]
  - IMPAIRED WORK ABILITY [None]
  - JOINT SWELLING [None]
  - MALAISE [None]
  - NAUSEA [None]
  - OEDEMA PERIPHERAL [None]
  - PAIN IN EXTREMITY [None]
  - PAIN IN JAW [None]
  - URINARY TRACT INFECTION [None]
  - URTICARIA PAPULAR [None]
